FAERS Safety Report 20178108 (Version 2)
Quarter: 2022Q1

REPORT INFORMATION
  Report Type: Spontaneous
  Country: US (occurrence: US)
  Receive Date: 20211213
  Receipt Date: 20220103
  Transmission Date: 20220423
  Serious: Yes (Other)
  Sender: FDA-Public Use
  Company Number: US-009507513-2111USA007769

PATIENT
  Sex: Female

DRUGS (9)
  1. KEYTRUDA [Suspect]
     Active Substance: PEMBROLIZUMAB
     Indication: Non-small cell lung cancer
     Dosage: UNK
     Route: 042
     Dates: start: 202101
  2. CARBOPLATIN [Concomitant]
     Active Substance: CARBOPLATIN
  3. CELECOXIB [Concomitant]
     Active Substance: CELECOXIB
  4. MOBIC [Concomitant]
     Active Substance: MELOXICAM
  5. ZOCOR [Concomitant]
     Active Substance: SIMVASTATIN
  6. HYDROCHLOROTHIAZIDE [Concomitant]
     Active Substance: HYDROCHLOROTHIAZIDE
  7. PRILOSEC [Concomitant]
     Active Substance: OMEPRAZOLE MAGNESIUM
  8. NEURONTIN [Concomitant]
     Active Substance: GABAPENTIN
  9. ALIMTA [Concomitant]
     Active Substance: PEMETREXED DISODIUM

REACTIONS (5)
  - Malignant neoplasm progression [Unknown]
  - Palmoplantar pustulosis [Not Recovered/Not Resolved]
  - Skin ulcer [Not Recovered/Not Resolved]
  - Stomatitis [Not Recovered/Not Resolved]
  - Gait disturbance [Not Recovered/Not Resolved]

NARRATIVE: CASE EVENT DATE: 20210101
